FAERS Safety Report 4478730-5 (Version None)
Quarter: 2004Q4

REPORT INFORMATION
  Report Type: 
  Country: None (occurrence: None)
  Receive Date: 20041019
  Receipt Date: 20030121
  Transmission Date: 20050328
  Serious: Yes (Hospitalization)
  Sender: FDA-Public Use
  Company Number: US-BRISTOL-MYERS SQUIBB COMPANY-12169249

PATIENT
  Age: 29 Year
  Sex: Male

DRUGS (3)
  1. HOLOXAN [Suspect]
     Indication: TESTIS CANCER
     Dosage: 01-MAY-2002, EVERY 3-4 WEEKS
     Route: 042
     Dates: start: 20020528, end: 20020528
  2. CISPLATIN [Suspect]
     Indication: TESTIS CANCER
     Dosage: 01-MAY-2002, EVERY 3-4 WEEKS
     Route: 042
     Dates: start: 20020528, end: 20020528
  3. VINBLASTINE SULFATE [Suspect]
     Indication: TESTIS CANCER
     Dosage: 01-MAY-2002, EVERY 3-4 WEEKS
     Route: 042
     Dates: start: 20020528, end: 20020528

REACTIONS (5)
  - FEBRILE BONE MARROW APLASIA [None]
  - METABOLIC ACIDOSIS [None]
  - RENAL FAILURE ACUTE [None]
  - RENAL TUBULAR DISORDER [None]
  - SEPSIS [None]
